FAERS Safety Report 4474279-4 (Version None)
Quarter: 2004Q4

REPORT INFORMATION
  Report Type: 
  Country: None (occurrence: None)
  Receive Date: 20041012
  Receipt Date: 20041012
  Transmission Date: 20050328
  Serious: Yes (Disabling, Other)
  Sender: FDA-Public Use
  Company Number: None

PATIENT
  Age: 56 Year
  Sex: Female
  Weight: 77.1115 kg

DRUGS (2)
  1. NARDIL [Suspect]
     Indication: DEPRESSION
     Dosage: 1 3 TIMES DAILY ORAL
     Route: 048
     Dates: start: 19880301, end: 20041011
  2. NARDIL [Suspect]
     Indication: GENERALISED ANXIETY DISORDER
     Dosage: 1 3 TIMES DAILY ORAL
     Route: 048
     Dates: start: 19880301, end: 20041011

REACTIONS (9)
  - ANXIETY [None]
  - CONDITION AGGRAVATED [None]
  - DEPRESSION [None]
  - DIARRHOEA [None]
  - DISCOMFORT [None]
  - DRUG EFFECT DECREASED [None]
  - FLATULENCE [None]
  - NAUSEA [None]
  - PHARMACEUTICAL PRODUCT COMPLAINT [None]
